FAERS Safety Report 7833265-4 (Version None)
Quarter: 2011Q4

REPORT INFORMATION
  Report Type: 
  Country: None (occurrence: None)
  Receive Date: 20111024
  Receipt Date: 20111014
  Transmission Date: 20120403
  Serious: Yes (Hospitalization)
  Sender: FDA-Public Use
  Company Number: EC-JNJFOC-20110704131

PATIENT
  Age: 30 Year
  Sex: Female
  Weight: 68 kg

DRUGS (6)
  1. FOLIC ACID [Concomitant]
     Route: 058
  2. CALCIUM CARBONATE [Concomitant]
     Route: 058
  3. PREDNISONE [Concomitant]
  4. METHOTREXATE [Concomitant]
     Route: 058
  5. GOLIMUMAB [Suspect]
     Indication: RHEUMATOID ARTHRITIS
     Route: 058
     Dates: start: 20101006
  6. GOLIMUMAB [Suspect]
     Route: 058
     Dates: start: 20110616

REACTIONS (1)
  - OVARIAN CYST [None]
